FAERS Safety Report 10366870 (Version 1)
Quarter: 2014Q3

REPORT INFORMATION
  Report Type: Spontaneous
  Country: US (occurrence: US)
  Receive Date: 20140807
  Receipt Date: 20140807
  Transmission Date: 20150326
  Serious: Yes (Other)
  Sender: FDA-Public Use
  Company Number: US-AMGEN-USASP2014058246

PATIENT
  Sex: Female

DRUGS (1)
  1. PROLIA [Suspect]
     Active Substance: DENOSUMAB
     Indication: OSTEOPOROSIS POSTMENOPAUSAL
     Dosage: UNK
     Route: 065

REACTIONS (10)
  - Spinal deformity [Unknown]
  - Asthenia [Unknown]
  - Body height decreased [Unknown]
  - Wrist fracture [Unknown]
  - Activities of daily living impaired [Unknown]
  - Premature menopause [Unknown]
  - Decreased activity [Unknown]
  - Groin pain [Unknown]
  - Back pain [Unknown]
  - Dyspnoea [Unknown]
